FAERS Safety Report 4473413-X (Version None)
Quarter: 2004Q3

REPORT INFORMATION
  Report Type: 
  Country: None (occurrence: None)
  Receive Date: 20040917
  Receipt Date: 20040607
  Transmission Date: 20050211
  Serious: Yes (Hospitalization)
  Sender: FDA-Public Use
  Company Number: US-JNJFOC-20040205928

PATIENT
  Age: 41 Year
  Sex: Female
  Weight: 72.5755 kg

DRUGS (10)
  1. ORTHO EVRA [Suspect]
     Indication: PREMENSTRUAL SYNDROME
     Dosage: 1 DOSE(S), 3 IN 4 WEEK, TRANSDERMAL
     Route: 062
     Dates: start: 20031017
  2. CLOZAPINE [Suspect]
     Indication: SCHIZOAFFECTIVE DISORDER
     Dosage: ORAL
     Route: 048
     Dates: start: 20031205, end: 20040101
  3. SEROQUEL (QUETIAPINE FUMURATE) UNSPECIFIED [Concomitant]
  4. LAMOTRIGINE [Concomitant]
  5. NEURONTIN [Concomitant]
  6. LITHIUM (LITHIUM) [Concomitant]
  7. CYTOMEL (LIOTHYROXINE SODIUM) [Concomitant]
  8. SYNTHROID [Concomitant]
  9. ASPIRIN [Concomitant]
  10. ABILIFY [Concomitant]

REACTIONS (1)
  - PULMONARY EMBOLISM [None]
